FAERS Safety Report 10437615 (Version 1)
Quarter: 2014Q3

REPORT INFORMATION
  Report Type: Other
  Country: FR (occurrence: FR)
  Receive Date: 20140908
  Receipt Date: 20140908
  Transmission Date: 20150326
  Serious: Yes (Other)
  Sender: FDA-Public Use
  Company Number: FR-MYLAN-2014M1003644

PATIENT

DRUGS (30)
  1. METHOTREXATE [Suspect]
     Active Substance: METHOTREXATE
     Indication: ACUTE MYELOID LEUKAEMIA
     Dosage: 15 MG, ONCE
     Route: 037
     Dates: start: 20090726, end: 20090726
  2. CANCIDAS [Suspect]
     Active Substance: CASPOFUNGIN ACETATE
     Indication: PYREXIA
     Dosage: 70 MG, QD
     Route: 042
     Dates: start: 20090726, end: 20090809
  3. CIPROFLOXACIN. [Suspect]
     Active Substance: CIPROFLOXACIN
     Indication: PYREXIA
     Dosage: 400 MG, TID
     Route: 042
     Dates: start: 20090802
  4. METHOTREXATE [Suspect]
     Active Substance: METHOTREXATE
     Dosage: 15 MG, ONCE
     Route: 037
     Dates: start: 20090803, end: 20090803
  5. GENTAMYCIN                         /00047101/ [Suspect]
     Active Substance: GENTAMICIN
     Indication: PYREXIA
     Dosage: 100 MG, TID
     Route: 042
     Dates: start: 20090728
  6. TIENAM [Suspect]
     Active Substance: CILASTATIN SODIUM\IMIPENEM
     Indication: PYREXIA
     Dosage: 500 MG, QID
     Route: 042
     Dates: start: 20090807, end: 20090816
  7. SPASFON                            /00765801/ [Concomitant]
     Active Substance: PHLOROGLUCINOL\1,3,5-TRIMETHOXYBENZENE
     Dosage: 80 MG, TID
     Route: 042
     Dates: start: 20090731, end: 20090802
  8. METHYLPREDNISOLONE HYDROGEN SUCCINATE [Suspect]
     Active Substance: METHYLPREDNISOLONE HEMISUCCINATE
     Dosage: 20 MG, 1 IN 1 DAY
     Route: 037
     Dates: start: 20090803, end: 20090803
  9. ARACYTINE [Suspect]
     Active Substance: CYTARABINE
     Dosage: 30 MG, ONCE
     Route: 037
     Dates: start: 20090803, end: 20090803
  10. TARGOCID [Suspect]
     Active Substance: TEICOPLANIN
     Indication: PYREXIA
     Dosage: 600 MG, QD
     Route: 042
  11. BACTRIM [Suspect]
     Active Substance: SULFAMETHOXAZOLE\TRIMETHOPRIM
     Dosage: 800 MG, QD
     Route: 048
     Dates: start: 20090804
  12. ACYCLOVIR                          /00587301/ [Suspect]
     Active Substance: ACYCLOVIR
     Indication: PYREXIA
     Dosage: 500 MG, TID
     Route: 042
     Dates: start: 20090805
  13. PLITICAN [Concomitant]
     Active Substance: ALIZAPRIDE HYDROCHLORIDE
     Indication: NAUSEA
     Dosage: 50 MG, 4 IN 1 DAY
     Route: 042
     Dates: start: 20090727, end: 20090803
  14. EFFERALGAN [Concomitant]
     Active Substance: ACETAMINOPHEN
     Indication: PAIN
     Dosage: 15 MG/KG, UNK
     Route: 048
     Dates: start: 20090725
  15. METHYLPREDNISOLONE HYDROGEN SUCCINATE [Suspect]
     Active Substance: METHYLPREDNISOLONE HEMISUCCINATE
     Indication: ACUTE MYELOID LEUKAEMIA
     Dosage: 20 MG, 1 IN 1 DAY
     Route: 037
     Dates: start: 20090726, end: 20090726
  16. ARACYTINE [Suspect]
     Active Substance: CYTARABINE
     Dosage: 200 MG/M2, 340MG 1IN 24 HOURS
     Route: 042
     Dates: start: 20090727, end: 20090801
  17. FUNGIZONE [Suspect]
     Active Substance: AMPHOTERICIN B
     Dosage: 3 IN 1 HOUR
     Route: 048
     Dates: start: 20090728
  18. MITOXANTRONE 2 MG/M SOLUTION ? DILUER POUR PERFUSION [Suspect]
     Active Substance: MITOXANTRONE HYDROCHLORIDE
     Indication: ACUTE MYELOID LEUKAEMIA
     Dosage: 20.4 MG, 1 IN 1 DAY
     Route: 042
     Dates: start: 20090726, end: 20090730
  19. ARACYTINE [Suspect]
     Active Substance: CYTARABINE
     Indication: ACUTE MYELOID LEUKAEMIA
     Dosage: 30 MG, ONCE
     Route: 037
     Dates: start: 20090726, end: 20090726
  20. TAZOCILLINE [Suspect]
     Active Substance: PIPERACILLIN SODIUM\TAZOBACTAM SODIUM
     Indication: PYREXIA
     Dosage: UNK
     Route: 042
     Dates: start: 20090725, end: 20090806
  21. INEXIUM                            /01479302/ [Suspect]
     Active Substance: ESOMEPRAZOLE MAGNESIUM
     Dosage: 40 MG, QD
     Route: 042
     Dates: start: 20090728
  22. METRONIDAZOLE. [Suspect]
     Active Substance: METRONIDAZOLE
     Dosage: 500 MG, TID
     Route: 042
     Dates: start: 20090803, end: 20090806
  23. NALBUPHINE RENAUDIN [Concomitant]
     Indication: PAIN
     Dosage: 10 MG, 6 IN 1 DAY
     Route: 042
     Dates: start: 20090730, end: 20090803
  24. PULMICORT TURBUHALER [Concomitant]
     Active Substance: BUDESONIDE
     Dosage: 1 MG, QD
     Route: 055
     Dates: start: 20090730, end: 20090731
  25. TRANXENE T-TAB [Concomitant]
     Active Substance: CLORAZEPATE DIPOTASSIUM
     Indication: ANXIETY
     Dosage: 20 MG, QD
     Route: 042
     Dates: start: 20090804
  26. ONDANSETRON [Concomitant]
     Active Substance: ONDANSETRON
     Indication: NAUSEA
     Dosage: 8 MG, 2 IN 1 DAY
     Route: 042
     Dates: start: 20090726
  27. TIORFAN [Suspect]
     Active Substance: RACECADOTRIL
     Dosage: 100 MG, TID
     Route: 048
     Dates: start: 20090731
  28. CONTRAMAL [Suspect]
     Active Substance: TRAMADOL HYDROCHLORIDE
     Indication: PAIN
     Dosage: 50 MG, Q4H
     Route: 042
     Dates: start: 20090807, end: 20090809
  29. AMIKACIN [Concomitant]
     Active Substance: AMIKACIN
     Indication: PYREXIA
     Dosage: 950 MG, UNK
     Route: 042
     Dates: start: 20090725, end: 20090726
  30. FASTURTEC [Concomitant]
     Active Substance: RASBURICASE
     Dosage: 7.5 MG, QD
     Route: 042
     Dates: start: 20090725, end: 20090727

REACTIONS (5)
  - Cytotoxic oedema [Recovered/Resolved]
  - Dysarthria [Recovered/Resolved]
  - Hemiplegia [Recovered/Resolved]
  - VIIth nerve paralysis [Recovered/Resolved]
  - Convulsion [Recovered/Resolved]

NARRATIVE: CASE EVENT DATE: 20090811
